FAERS Safety Report 16793878 (Version 4)
Quarter: 2019Q4

REPORT INFORMATION
  Report Type: Spontaneous
  Country: CN (occurrence: CN)
  Receive Date: 20190911
  Receipt Date: 20191114
  Transmission Date: 20200122
  Serious: Yes (Death)
  Sender: FDA-Public Use
  Company Number: CN-ASTRAZENECA-2019SF27466

PATIENT
  Age: 50 Year
  Sex: Female
  Weight: 45 kg

DRUGS (1)
  1. IRESSA [Suspect]
     Active Substance: GEFITINIB
     Indication: NON-SMALL CELL LUNG CANCER
     Route: 048
     Dates: start: 201809

REACTIONS (7)
  - Drug ineffective [Unknown]
  - Diarrhoea [Not Recovered/Not Resolved]
  - Nerve compression [Not Recovered/Not Resolved]
  - Mobility decreased [Unknown]
  - Headache [Not Recovered/Not Resolved]
  - Malignant neoplasm progression [Fatal]
  - Drug resistance [Unknown]

NARRATIVE: CASE EVENT DATE: 201809
